FAERS Safety Report 8607863 (Version 3)
Quarter: 2014Q2

REPORT INFORMATION
  Report Type: Spontaneous
  Country: US (occurrence: US)
  Receive Date: 20120611
  Receipt Date: 20140423
  Transmission Date: 20141212
  Serious: Yes (Hospitalization, Disabling, Other)
  Sender: FDA-Public Use
  Company Number: US-ASTRAZENECA-2012SE35312

PATIENT
  Age: 20711 Day
  Sex: Female

DRUGS (40)
  1. NEXIUM [Suspect]
     Indication: GASTROOESOPHAGEAL REFLUX DISEASE
     Route: 048
     Dates: start: 2007, end: 2010
  2. NEXIUM [Suspect]
     Indication: EROSIVE OESOPHAGITIS
     Route: 048
     Dates: start: 2007, end: 2010
  3. NEXIUM [Suspect]
     Indication: ULCER
     Route: 048
     Dates: start: 2007, end: 2010
  4. NEXIUM [Suspect]
     Indication: GASTROOESOPHAGEAL REFLUX DISEASE
     Route: 048
     Dates: start: 20080703
  5. NEXIUM [Suspect]
     Indication: EROSIVE OESOPHAGITIS
     Route: 048
     Dates: start: 20080703
  6. NEXIUM [Suspect]
     Indication: ULCER
     Route: 048
     Dates: start: 20080703
  7. PRILOSEC [Suspect]
     Indication: ABDOMINAL PAIN UPPER
     Route: 048
     Dates: start: 1998, end: 2002
  8. PRILOSEC [Suspect]
     Indication: ABDOMINAL PAIN UPPER
     Route: 048
     Dates: start: 19980702
  9. PRILOSEC [Suspect]
     Indication: ABDOMINAL PAIN UPPER
     Route: 048
     Dates: start: 20020207
  10. PREVACID [Concomitant]
     Indication: ABDOMINAL PAIN
     Dates: start: 2008
  11. PEPCID [Concomitant]
     Indication: ABDOMINAL PAIN
     Dates: start: 20110806
  12. PEPCID [Concomitant]
     Indication: CHEST PAIN
     Dates: start: 20110806
  13. PROTONIX [Concomitant]
     Indication: ABDOMINAL PAIN
     Dates: start: 2011
  14. TAGAMET [Concomitant]
     Indication: ABDOMINAL PAIN
  15. TAGAMET [Concomitant]
     Indication: ABDOMINAL PAIN
     Dates: start: 19950114
  16. MYLANTA [Concomitant]
  17. TUMS [Concomitant]
     Dosage: AS NEEDED
  18. ROLAIDS [Concomitant]
     Dosage: AS NEEDED
  19. DIPLIN [Concomitant]
  20. HCTZ [Concomitant]
  21. UROCIT K [Concomitant]
  22. ASA [Concomitant]
  23. VITAMIN B12 [Concomitant]
     Dosage: MONTHLY
  24. CRESTOR [Concomitant]
  25. LEXAPRO [Concomitant]
  26. LABETALOL [Concomitant]
  27. ABILIFY [Concomitant]
  28. EVISTA [Concomitant]
  29. AMITIZA [Concomitant]
  30. ZOFRAN [Concomitant]
  31. LEVBID [Concomitant]
  32. ADVIL [Concomitant]
     Dosage: AS NEEDED
  33. PANTOPRAZOLE [Concomitant]
     Dates: start: 20110623
  34. PLAVIX [Concomitant]
     Dates: start: 20001108
  35. BENZONATATE [Concomitant]
     Route: 048
     Dates: start: 20100122
  36. METHADONE [Concomitant]
     Route: 048
     Dates: start: 20100224
  37. ESTRADIOL [Concomitant]
     Route: 048
     Dates: start: 19980702
  38. TEGRETOL [Concomitant]
     Dates: start: 20000425
  39. TORADOL [Concomitant]
     Dates: start: 20000425
  40. DEPAKOTE [Concomitant]
     Dates: start: 20000425

REACTIONS (18)
  - Thoracic vertebral fracture [Unknown]
  - Cerebrovascular accident [Unknown]
  - Gastrointestinal haemorrhage [Unknown]
  - Neoplasm malignant [Unknown]
  - Nephrolithiasis [Unknown]
  - Pneumonia [Unknown]
  - Spinocerebellar disorder [Unknown]
  - Transient ischaemic attack [Unknown]
  - Fall [Unknown]
  - Bone density decreased [Unknown]
  - Osteoporosis [Unknown]
  - Osteopenia [Unknown]
  - Tooth loss [Unknown]
  - Weight decreased [Unknown]
  - Arthritis [Unknown]
  - Chronic obstructive pulmonary disease [Unknown]
  - Foot fracture [Unknown]
  - Depression [Unknown]
